FAERS Safety Report 23025892 (Version 1)
Quarter: 2023Q4

REPORT INFORMATION
  Report Type: Spontaneous
  Country: GB (occurrence: None)
  Receive Date: 20231004
  Receipt Date: 20231004
  Transmission Date: 20240109
  Serious: Yes (Disabling)
  Sender: FDA-Public Use
  Company Number: 2023A219234

PATIENT
  Age: 64 Year
  Sex: Female
  Weight: 87 kg

DRUGS (18)
  1. DAPAGLIFLOZIN [Suspect]
     Active Substance: DAPAGLIFLOZIN
     Dosage: 10 UNK DAILY
     Dates: start: 20230817
  2. ALOGLIPTIN [Concomitant]
     Active Substance: ALOGLIPTIN
     Dosage: 1 UNK EVERY DAY
     Dates: start: 20220811
  3. AMLODIPINE [Concomitant]
     Active Substance: AMLODIPINE BESYLATE
     Dosage: 1 UNK MORNING
     Dates: start: 20230628
  4. ASPIRIN [Concomitant]
     Active Substance: ASPIRIN
     Dosage: 1
     Dates: start: 20221127
  5. ATORVASTATIN [Concomitant]
     Active Substance: ATORVASTATIN
     Dosage: 1
     Dates: start: 20220923
  6. BETAMETHASONE SODIUM PHOSPHATE [Concomitant]
     Active Substance: BETAMETHASONE SODIUM PHOSPHATE
     Dosage: DISSOLVED IN 20ML OF WATER. HOLD IN THE MOUTH...
     Dates: start: 20210629
  7. BISOPROLOL [Concomitant]
     Active Substance: BISOPROLOL\BISOPROLOL FUMARATE
     Dosage: 1
     Dates: start: 20220907
  8. COAL TAR\COCONUT OIL\SALICYLIC ACID [Concomitant]
     Active Substance: COAL TAR\COCONUT OIL\SALICYLIC ACID
     Dosage: USE DAILY FOR A WEEK THEN TWICE A WEEK
     Dates: start: 20230912, end: 20230913
  9. ISOSORBIDE MONONITRATE [Concomitant]
     Active Substance: ISOSORBIDE MONONITRATE
     Dosage: MORNING
     Dates: start: 20220912
  10. GABAPENTIN [Concomitant]
     Active Substance: GABAPENTIN
     Dates: start: 20220831
  11. INSULIN HUMAN [Concomitant]
     Active Substance: INSULIN HUMAN
     Dosage: USE AS DIRECTED
     Dates: start: 20220928
  12. HYDROXOCOBALAMIN [Concomitant]
     Active Substance: HYDROXOCOBALAMIN
     Dosage: 1MG I/M ADMINISTRATION 12 WEEKLY. FOR SURGERY A...
     Dates: start: 20190528
  13. METOCLOPRAMIDE [Concomitant]
     Active Substance: METOCLOPRAMIDE
     Dates: start: 20230208
  14. MOMETASONE [Concomitant]
     Active Substance: MOMETASONE
     Dosage: APPLY DAILY AT NIGHT
     Route: 061
     Dates: start: 20230912
  15. NICORANDIL [Concomitant]
     Active Substance: NICORANDIL
     Dates: start: 20220912
  16. RAMIPRIL [Concomitant]
     Active Substance: RAMIPRIL
     Dates: start: 20230327
  17. ALBUTEROL [Concomitant]
     Active Substance: ALBUTEROL
     Dosage: INHALE 1-2 DOSES PRN UP TO FOUR TIMES PER DAY -...
     Route: 055
     Dates: start: 20220722
  18. BECLOMETHASONE DIPROPIONATE\FORMOTEROL FUMARATE\GLYCOPYRROLATE [Concomitant]
     Active Substance: BECLOMETHASONE DIPROPIONATE\FORMOTEROL FUMARATE\GLYCOPYRROLATE
     Route: 055
     Dates: start: 20220725

REACTIONS (1)
  - Pruritus [Recovered/Resolved]
